FAERS Safety Report 6835651-8 (Version None)
Quarter: 2010Q3

REPORT INFORMATION
  Report Type: 
  Country: None (occurrence: None)
  Receive Date: 20100713
  Receipt Date: 20100706
  Transmission Date: 20110219
  Serious: Yes (Life-Threatening)
  Sender: FDA-Public Use
  Company Number: US-JNJFOC-20100702400

PATIENT
  Age: 31 Year
  Sex: Male
  Weight: 63.5 kg

DRUGS (1)
  1. RISPERDAL [Suspect]
     Indication: PRODUCT USED FOR UNKNOWN INDICATION
     Route: 065

REACTIONS (3)
  - RENAL FAILURE [None]
  - RENAL TUBULAR ACIDOSIS [None]
  - URINE OUTPUT DECREASED [None]
